FAERS Safety Report 10916478 (Version 2)
Quarter: 2015Q2

REPORT INFORMATION
  Report Type: Spontaneous
  Country: US (occurrence: US)
  Receive Date: 20150316
  Receipt Date: 20150511
  Transmission Date: 20150821
  Serious: Yes (Death)
  Sender: FDA-Public Use
  Company Number: US-CELGENEUS-USA-2015032785

PATIENT
  Age: 12 Year
  Sex: Male

DRUGS (4)
  1. THALOMID [Suspect]
     Active Substance: THALIDOMIDE
     Route: 048
  2. THALOMID [Suspect]
     Active Substance: THALIDOMIDE
     Route: 048
  3. THALOMID [Suspect]
     Active Substance: THALIDOMIDE
     Indication: BRAIN NEOPLASM MALIGNANT
     Route: 048
     Dates: start: 20141220
  4. THALOMID [Suspect]
     Active Substance: THALIDOMIDE
     Route: 048

REACTIONS (1)
  - Brain neoplasm [Fatal]

NARRATIVE: CASE EVENT DATE: 20150217
